FAERS Safety Report 6892592-8 (Version None)
Quarter: 2010Q3

REPORT INFORMATION
  Report Type: 
  Country: None (occurrence: None)
  Receive Date: 20100731
  Receipt Date: 20080717
  Transmission Date: 20110219
  Serious: No
  Sender: FDA-Public Use
  Company Number: US-PFIZER INC-2008060524

PATIENT
  Sex: Male
  Weight: 72.57 kg

DRUGS (2)
  1. NORVASC [Suspect]
     Indication: HYPERTENSION
     Dates: end: 20080601
  2. AMLODIPINE [Suspect]
     Indication: BLOOD PRESSURE
     Dates: start: 20080601

REACTIONS (1)
  - FATIGUE [None]
